FAERS Safety Report 7957511-1 (Version None)
Quarter: 2011Q4

REPORT INFORMATION
  Report Type: 
  Country: None (occurrence: None)
  Receive Date: 20111205
  Receipt Date: 20111128
  Transmission Date: 20120403
  Serious: Yes (Death, Hospitalization)
  Sender: FDA-Public Use
  Company Number: US-GLAXOSMITHKLINE-A0942398A

PATIENT
  Age: 62 Year
  Sex: Male

DRUGS (2)
  1. ADVAIR DISKUS 100/50 [Suspect]
     Indication: PRODUCT USED FOR UNKNOWN INDICATION
     Route: 065
     Dates: start: 20110610
  2. VENTOLIN [Suspect]
     Indication: PRODUCT USED FOR UNKNOWN INDICATION
     Route: 065
     Dates: start: 20110610

REACTIONS (15)
  - ACUTE RESPIRATORY FAILURE [None]
  - OXYGEN SATURATION DECREASED [None]
  - RENAL FAILURE ACUTE [None]
  - THROMBOCYTOPENIA [None]
  - RESPIRATORY FAILURE [None]
  - PYREXIA [None]
  - NEUTROPENIA [None]
  - SEPTIC SHOCK [None]
  - FLUID OVERLOAD [None]
  - ASTHENIA [None]
  - RESPIRATORY DISTRESS [None]
  - PNEUMONIA [None]
  - DYSPNOEA [None]
  - STAPHYLOCOCCAL SEPSIS [None]
  - FATIGUE [None]
